FAERS Safety Report 23406435 (Version 2)
Quarter: 2024Q1

REPORT INFORMATION
  Report Type: Report from Study
  Country: BR (occurrence: BR)
  Receive Date: 20240116
  Receipt Date: 20240131
  Transmission Date: 20240410
  Serious: Yes (Other)
  Sender: FDA-Public Use
  Company Number: BR-MYLANLABS-2024M1002460

PATIENT
  Sex: Female
  Weight: 65 kg

DRUGS (3)
  1. XALATAN [Suspect]
     Active Substance: LATANOPROST
     Indication: Glaucoma
     Dosage: 1 GTT DROPS, QD (PM)
     Route: 047
  2. XALATAN [Suspect]
     Active Substance: LATANOPROST
     Indication: Ocular hypertension
     Dosage: 1 GTT DROPS, QD (PM)
     Route: 047
     Dates: start: 202312
  3. MECLIN [Concomitant]
     Indication: Labyrinthitis
     Dosage: UNK (AS NEEDED)
     Route: 065

REACTIONS (6)
  - Tendon rupture [Recovering/Resolving]
  - Intervertebral disc protrusion [Recovering/Resolving]
  - Bursitis [Recovering/Resolving]
  - Tendonitis [Recovering/Resolving]
  - Blood cholesterol increased [Not Recovered/Not Resolved]
  - Visual impairment [Not Recovered/Not Resolved]
